FAERS Safety Report 23112697 (Version 2)
Quarter: 2023Q4

REPORT INFORMATION
  Report Type: Report from Study
  Country: US (occurrence: US)
  Receive Date: 20231027
  Receipt Date: 20231129
  Transmission Date: 20240109
  Serious: No
  Sender: FDA-Public Use
  Company Number: US-ACADIA PHARMACEUTICALS INC.-ACA-2023-PIM-004502

PATIENT
  Sex: Female

DRUGS (10)
  1. NUPLAZID [Suspect]
     Active Substance: PIMAVANSERIN TARTRATE
     Indication: Parkinson^s disease
     Dosage: 10 MILLIGRAM, QD
     Route: 048
     Dates: start: 202310
  2. NUPLAZID [Suspect]
     Active Substance: PIMAVANSERIN TARTRATE
     Indication: Parkinson^s disease psychosis
     Dosage: 34 MILLIGRAM, QD
     Route: 048
  3. ZOLOFT [Concomitant]
     Active Substance: SERTRALINE HYDROCHLORIDE
  4. SYNTHROID [Concomitant]
     Active Substance: LEVOTHYROXINE SODIUM
  5. TYLENOL [Concomitant]
     Active Substance: ACETAMINOPHEN
  6. SIMVASTATIN [Concomitant]
     Active Substance: SIMVASTATIN
  7. COMTAN [Concomitant]
     Active Substance: ENTACAPONE
  8. LYRICA [Concomitant]
     Active Substance: PREGABALIN
  9. MIDODRINE [Concomitant]
     Active Substance: MIDODRINE
  10. CARBIDOPA [Concomitant]
     Active Substance: CARBIDOPA

REACTIONS (9)
  - Sleep disorder [Unknown]
  - Asthenia [Unknown]
  - Cognitive disorder [Unknown]
  - Dysstasia [Unknown]
  - Balance disorder [Unknown]
  - Ill-defined disorder [Unknown]
  - Hallucination [Unknown]
  - Gait disturbance [Unknown]
  - Drug ineffective [Unknown]
